FAERS Safety Report 8608956-8 (Version None)
Quarter: 2012Q3

REPORT INFORMATION
  Report Type: 
  Country: None (occurrence: None)
  Receive Date: 20120808
  Receipt Date: 20120808
  Transmission Date: 20120928
  Serious: Yes (Other)
  Sender: FDA-Public Use
  Company Number: 2012MA008998

PATIENT
  Age: 14 Year
  Sex: Female

DRUGS (1)
  1. ACETAMINOPHEN AND CODEINE PHOSPHATE [Suspect]
     Indication: ARTHRALGIA
     Dosage: 30 MG;

REACTIONS (6)
  - OVERDOSE [None]
  - IRRITABILITY [None]
  - RESTLESSNESS [None]
  - DYSKINESIA [None]
  - DYSPNOEA [None]
  - SOMNOLENCE [None]
